FAERS Safety Report 23504642 (Version 1)
Quarter: 2024Q1

REPORT INFORMATION
  Report Type: Report from Study
  Country: US (occurrence: US)
  Receive Date: 20240209
  Receipt Date: 20240209
  Transmission Date: 20240410
  Serious: Yes (Other)
  Sender: FDA-Public Use
  Company Number: US-ABBVIE-5625179

PATIENT
  Sex: Male

DRUGS (2)
  1. IMBRUVICA [Suspect]
     Active Substance: IBRUTINIB
     Indication: Product used for unknown indication
     Route: 048
  2. IMBRUVICA [Suspect]
     Active Substance: IBRUTINIB
     Indication: Product used for unknown indication
     Route: 048
     Dates: start: 20210216

REACTIONS (5)
  - Pituitary tumour [Recovering/Resolving]
  - Cerebrospinal fluid leakage [Recovered/Resolved]
  - Peripheral swelling [Unknown]
  - Blindness unilateral [Recovered/Resolved]
  - Blindness unilateral [Unknown]
